FAERS Safety Report 6817683-9 (Version None)
Quarter: 2010Q3

REPORT INFORMATION
  Report Type: 
  Country: None (occurrence: None)
  Receive Date: 20100706
  Receipt Date: 20100628
  Transmission Date: 20110219
  Serious: Yes (Other)
  Sender: FDA-Public Use
  Company Number: US-PFIZER INC-2006007210

PATIENT
  Sex: Male
  Weight: 91 kg

DRUGS (20)
  1. NORVASC [Suspect]
     Indication: HYPERTENSION
     Dosage: DAILY
     Route: 048
     Dates: start: 20050101, end: 20051101
  2. GLUCOTROL XL [Suspect]
     Indication: DIABETES MELLITUS
     Dosage: 2.5 MG, 2X/DAY
     Route: 048
     Dates: start: 20050101
  3. CELEBREX [Suspect]
     Indication: ILL-DEFINED DISORDER
     Route: 065
  4. FELDENE [Suspect]
     Indication: ILL-DEFINED DISORDER
     Dosage: UNK
     Route: 065
  5. FELDENE [Suspect]
     Indication: PSORIATIC ARTHROPATHY
     Dosage: UNK
     Route: 048
  6. FELDENE [Suspect]
     Indication: ANKYLOSING SPONDYLITIS
  7. FELDENE [Suspect]
     Indication: MYOPATHY
  8. CATAPRES [Suspect]
     Indication: HYPERTENSION
     Route: 065
     Dates: start: 20050101
  9. ACCUPRIL [Concomitant]
     Indication: HYPERTENSION
     Route: 065
  10. HYDROCHLOROTHIAZIDE [Concomitant]
     Indication: HYPERTENSION
     Dosage: 50 MG, UNK
     Route: 065
  11. PRILOSEC [Concomitant]
     Dosage: UNK
  12. ROBAXIN [Concomitant]
     Dosage: UNK
  13. PHENOBARBITAL [Concomitant]
     Dosage: UNK
  14. CLONIDINE [Concomitant]
     Dosage: UNK
  15. LASIX [Concomitant]
     Dosage: UNK
  16. LOVASTATIN [Concomitant]
     Dosage: UNK
  17. CALCIUM [Concomitant]
     Dosage: UNK
  18. VITAMIN D [Concomitant]
     Dosage: UNK
  19. POTASSIUM [Concomitant]
     Dosage: UNK
  20. BENADRYL [Concomitant]
     Dosage: UNK

REACTIONS (5)
  - ABDOMINAL PAIN UPPER [None]
  - DRUG INEFFECTIVE [None]
  - NAUSEA [None]
  - PARAESTHESIA [None]
  - SPONDYLITIS [None]
